FAERS Safety Report 6641699-9 (Version None)
Quarter: 2010Q1

REPORT INFORMATION
  Report Type: 
  Country: None (occurrence: None)
  Receive Date: 20100319
  Receipt Date: 20100308
  Transmission Date: 20100710
  Serious: Yes (Other)
  Sender: FDA-Public Use
  Company Number: ES-BIOGENIDEC-2009BI038995

PATIENT
  Age: 30 Year
  Sex: Female

DRUGS (4)
  1. TYSABRI [Suspect]
     Indication: MULTIPLE SCLEROSIS
     Route: 042
     Dates: start: 20081113, end: 20091029
  2. TYSABRI [Suspect]
     Route: 042
     Dates: start: 20100120
  3. VESICARE [Concomitant]
     Indication: URINARY INCONTINENCE
  4. LIORESAL [Concomitant]
     Indication: MUSCLE SPASTICITY

REACTIONS (1)
  - BASAL CELL CARCINOMA [None]
